FAERS Safety Report 16114277 (Version 1)
Quarter: 2019Q1

REPORT INFORMATION
  Report Type: Spontaneous
  Country: US (occurrence: US)
  Receive Date: 20190325
  Receipt Date: 20190325
  Transmission Date: 20190418
  Serious: No
  Sender: FDA-Public Use
  Company Number: US-ALLERGAN-1903434US

PATIENT
  Age: 41 Year
  Sex: Female
  Weight: 57.6 kg

DRUGS (5)
  1. AMBIEN [Concomitant]
     Active Substance: ZOLPIDEM TARTRATE
     Indication: SLEEP DISORDER
     Dosage: UNK UNK, PRN
     Route: 065
  2. MASCARA [Concomitant]
     Dosage: UNK
  3. VITAMINS [Concomitant]
     Active Substance: VITAMINS
     Dosage: UNK
     Route: 065
  4. SPIRONOLACTONE. [Concomitant]
     Active Substance: SPIRONOLACTONE
     Dosage: 100 MG, UNK
     Route: 065
  5. LATISSE [Suspect]
     Active Substance: BIMATOPROST
     Indication: GROWTH OF EYELASHES
     Dosage: ONCE OR TWICE IN A WEEK
     Route: 061
     Dates: end: 20190121

REACTIONS (7)
  - Lid sulcus deepened [Not Recovered/Not Resolved]
  - Blepharal pigmentation [Not Recovered/Not Resolved]
  - Eyelid thickening [Unknown]
  - Inappropriate schedule of product administration [Unknown]
  - Iris hyperpigmentation [Not Recovered/Not Resolved]
  - Product dose omission [Unknown]
  - Erythema of eyelid [Not Recovered/Not Resolved]

NARRATIVE: CASE EVENT DATE: 201807
